FAERS Safety Report 9963418 (Version 1)
Quarter: 2014Q1

REPORT INFORMATION
  Report Type: Report from Study
  Country: US (occurrence: US)
  Receive Date: 20140305
  Receipt Date: 20140305
  Transmission Date: 20141002
  Serious: No
  Sender: FDA-Public Use
  Company Number: US-ABBVIE-13P-163-1117917-00

PATIENT
  Age: 42 Year
  Sex: Female

DRUGS (6)
  1. HUMIRA [Suspect]
     Indication: PSORIASIS
     Dates: start: 20130617, end: 20130617
  2. HUMIRA [Suspect]
     Dates: start: 20130624, end: 20130624
  3. HUMIRA [Suspect]
  4. PRILOSEC [Concomitant]
     Indication: GASTROOESOPHAGEAL REFLUX DISEASE
  5. LEVOTHYROXINE [Concomitant]
     Indication: HYPOTHYROIDISM
  6. MINOCYCLINE [Concomitant]
     Indication: ACNE

REACTIONS (3)
  - Injection site pruritus [Not Recovered/Not Resolved]
  - Injection site swelling [Not Recovered/Not Resolved]
  - Injection site erythema [Not Recovered/Not Resolved]
